FAERS Safety Report 4345936-5 (Version None)
Quarter: 2004Q1

REPORT INFORMATION
  Report Type: 
  Country: None (occurrence: None)
  Receive Date: 20040325
  Receipt Date: 20040129
  Transmission Date: 20041129
  Serious: No
  Sender: FDA-Public Use
  Company Number: USA031254365

PATIENT
  Age: 69 Year
  Sex: Female
  Weight: 62 kg

DRUGS (1)
  1. FORTEO [Suspect]
     Dosage: 20 UG/DAY
     Dates: start: 20031101

REACTIONS (6)
  - BLOOD CALCIUM INCREASED [None]
  - HEADACHE [None]
  - LUNG DISORDER [None]
  - NAUSEA [None]
  - NECK PAIN [None]
  - VOMITING [None]
